FAERS Safety Report 14852542 (Version 1)
Quarter: 2018Q2

REPORT INFORMATION
  Report Type: Report from Study
  Country: IL (occurrence: IL)
  Receive Date: 20180507
  Receipt Date: 20180507
  Transmission Date: 20180711
  Serious: Yes (Hospitalization, Other)
  Sender: FDA-Public Use
  Company Number: PHHY2018IL074208

PATIENT
  Sex: Female
  Weight: 3.66 kg

DRUGS (1)
  1. GILENYA [Suspect]
     Active Substance: FINGOLIMOD HYDROCHLORIDE
     Indication: FOETAL EXPOSURE DURING PREGNANCY
     Dosage: FETAL DRUG EXPOSURE VIA FATHER: 0.5 MG, QD
     Route: 050

REACTIONS (7)
  - Developmental delay [Unknown]
  - Ultrasound pelvis abnormal [Unknown]
  - Bacterial vaginosis [Recovered/Resolved]
  - Asthma [Unknown]
  - Pneumonia [Unknown]
  - Dermatitis atopic [Unknown]
  - Exposure via father [Unknown]
